FAERS Safety Report 11745174 (Version 2)
Quarter: 2016Q1

REPORT INFORMATION
  Report Type: Spontaneous
  Country: US (occurrence: US)
  Receive Date: 20151117
  Receipt Date: 20160217
  Transmission Date: 20160525
  Serious: No
  Sender: FDA-Public Use
  Company Number: US-IROKO PHARMACEUTICALS LLC-US-I09001-15-00169

PATIENT
  Age: 27 Year
  Sex: Male

DRUGS (1)
  1. ZORVOLEX [Suspect]
     Active Substance: DICLOFENAC
     Indication: MIGRAINE
     Route: 048

REACTIONS (1)
  - Diarrhoea [Not Recovered/Not Resolved]
